FAERS Safety Report 5820970-4 (Version None)
Quarter: 2008Q3

REPORT INFORMATION
  Report Type: 
  Country: None (occurrence: None)
  Receive Date: 20080724
  Receipt Date: 20080723
  Transmission Date: 20090109
  Serious: Yes (Other)
  Sender: FDA-Public Use
  Company Number: US-BAYER-200819548NA

PATIENT
  Age: 28 Year
  Sex: Female
  Weight: 91 kg

DRUGS (1)
  1. MIRENA [Suspect]
     Indication: CONTRACEPTION
     Route: 015
     Dates: start: 20070711

REACTIONS (7)
  - AMENORRHOEA [None]
  - COMPLICATION OF DEVICE INSERTION [None]
  - CONVULSION [None]
  - FALL [None]
  - MENSTRUATION IRREGULAR [None]
  - POST PROCEDURAL HAEMORRHAGE [None]
  - PROCEDURAL PAIN [None]
